FAERS Safety Report 5453980-X (Version None)
Quarter: 2007Q3

REPORT INFORMATION
  Report Type: 
  Country: None (occurrence: None)
  Receive Date: 20070917
  Receipt Date: 20070228
  Transmission Date: 20080115
  Serious: No
  Sender: FDA-Public Use
  Company Number: US-ASTRAZENECA-2006UW03315

PATIENT
  Age: 40 Year
  Sex: Female
  Weight: 118.2 kg

DRUGS (6)
  1. SEROQUEL [Suspect]
     Indication: DEPRESSION
     Route: 048
     Dates: start: 20000401, end: 20021001
  2. SEROQUEL [Suspect]
     Indication: ANXIETY
     Route: 048
     Dates: start: 20000401, end: 20021001
  3. SEROQUEL [Suspect]
     Indication: SCHIZOPHRENIA
     Route: 048
     Dates: start: 20000401, end: 20021001
  4. RISPERDAL [Concomitant]
     Dates: start: 19990101, end: 20000101
  5. ZYPREXA [Concomitant]
     Dates: start: 19970101, end: 19990101
  6. SYMBYAX [Concomitant]
     Dates: start: 20010101, end: 20020101

REACTIONS (6)
  - BLOOD TRIGLYCERIDES INCREASED [None]
  - DIABETES MELLITUS [None]
  - HYPERLIPIDAEMIA [None]
  - HYPERSENSITIVITY [None]
  - OBESITY [None]
  - WEIGHT INCREASED [None]
